FAERS Safety Report 16810930 (Version 1)
Quarter: 2019Q3

REPORT INFORMATION
  Report Type: Spontaneous
  Country: CY (occurrence: CY)
  Receive Date: 20190916
  Receipt Date: 20190916
  Transmission Date: 20191005
  Serious: Yes (Death)
  Sender: FDA-Public Use
  Company Number: CY-BIOGEN-2019BI00784920

PATIENT
  Age: 12 Month
  Sex: Male

DRUGS (4)
  1. SPINRAZA [Suspect]
     Active Substance: NUSINERSEN
     Dosage: DAY 15
     Route: 037
     Dates: start: 20190708
  2. SPINRAZA [Suspect]
     Active Substance: NUSINERSEN
     Dosage: DAY 60
     Route: 037
     Dates: start: 20190826
  3. SPINRAZA [Suspect]
     Active Substance: NUSINERSEN
     Indication: SPINAL MUSCULAR ATROPHY
     Dosage: DAY 1
     Route: 037
     Dates: start: 20190624
  4. SPINRAZA [Suspect]
     Active Substance: NUSINERSEN
     Dosage: DAY 30
     Route: 037
     Dates: start: 20190722

REACTIONS (1)
  - Death [Fatal]

NARRATIVE: CASE EVENT DATE: 20190908
